FAERS Safety Report 23474146 (Version 1)
Quarter: 2024Q1

REPORT INFORMATION
  Report Type: Report from Study
  Country: US (occurrence: US)
  Receive Date: 20240204
  Receipt Date: 20240204
  Transmission Date: 20240410
  Serious: Yes (Hospitalization)
  Sender: FDA-Public Use
  Company Number: US-EXELIXIS-CABO-22058513

PATIENT
  Age: 74 Year
  Sex: Female

DRUGS (3)
  1. CABOMETYX [Suspect]
     Active Substance: CABOZANTINIB S-MALATE
     Indication: Renal cancer
     Dosage: 40 MG, QD
     Route: 048
  2. CABOMETYX [Suspect]
     Active Substance: CABOZANTINIB S-MALATE
     Dosage: 20 MG, QD
     Route: 048
  3. CABOMETYX [Suspect]
     Active Substance: CABOZANTINIB S-MALATE
     Dosage: 20 MG TAKING MEDICATION MONDAY THROUGH FRIDAY, NOT DAILY,
     Route: 048

REACTIONS (8)
  - Dehydration [Recovered/Resolved]
  - Diabetes mellitus [Unknown]
  - Oropharyngeal pain [Recovering/Resolving]
  - Blood pressure systolic increased [Recovering/Resolving]
  - Stomatitis [Recovered/Resolved]
  - Weight decreased [Unknown]
  - Inappropriate schedule of product administration [Unknown]
  - Product prescribing issue [Unknown]

NARRATIVE: CASE EVENT DATE: 20221101
